FAERS Safety Report 21543055 (Version 1)
Quarter: 2022Q4

REPORT INFORMATION
  Report Type: Spontaneous
  Country: US (occurrence: US)
  Receive Date: 20221102
  Receipt Date: 20221102
  Transmission Date: 20230113
  Serious: No
  Sender: FDA-Public Use
  Company Number: US-SMITH AND NEPHEW, INC-2016SMT00693

PATIENT
  Sex: Female
  Weight: 63.492 kg

DRUGS (7)
  1. COLLAGENASE SANTYL [Suspect]
     Active Substance: COLLAGENASE CLOSTRIDIUM HISTOLYTICUM
     Indication: Wound
     Dosage: UNK, 1X/DAY
     Route: 061
     Dates: start: 2014
  2. PREVACID [Concomitant]
     Active Substance: LANSOPRAZOLE
  3. PLENDIL [Concomitant]
     Active Substance: FELODIPINE
     Dosage: 2.5 MG
  4. IBUPROFEN [Concomitant]
     Active Substance: IBUPROFEN
  5. HYDROCODONE [Concomitant]
     Active Substance: HYDROCODONE
  6. VITAMIN D [Concomitant]
     Active Substance: VITAMIN D NOS
  7. METHYLPRO [Concomitant]

REACTIONS (1)
  - Hypersensitivity [Recovered/Resolved]

NARRATIVE: CASE EVENT DATE: 20140101
